FAERS Safety Report 10484066 (Version 1)
Quarter: 2014Q3

REPORT INFORMATION
  Report Type: Spontaneous
  Country: US (occurrence: None)
  Receive Date: 20140929
  Receipt Date: 20140929
  Transmission Date: 20150326
  Serious: Yes (Disabling)
  Sender: FDA-Public Use
  Company Number: None

PATIENT
  Age: 45 Year
  Sex: Female
  Weight: 66.23 kg

DRUGS (1)
  1. CIPROFLOXACIN. [Suspect]
     Active Substance: CIPROFLOXACIN
     Indication: URINARY TRACT INFECTION
     Dosage: 250MG 1PILL 2XDAY FOR 3DAYS TWICE DAILY TAKEN BY MOUTH
     Route: 048
     Dates: start: 20140925, end: 20140926

REACTIONS (3)
  - Product label issue [None]
  - Tendon disorder [None]
  - Muscle disorder [None]

NARRATIVE: CASE EVENT DATE: 20140926
